FAERS Safety Report 6702496-9 (Version None)
Quarter: 2010Q2

REPORT INFORMATION
  Report Type: 
  Country: None (occurrence: None)
  Receive Date: 20100429
  Receipt Date: 20100329
  Transmission Date: 20101027
  Serious: Yes (Other)
  Sender: FDA-Public Use
  Company Number: D0067082A

PATIENT
  Age: 8 Year
  Sex: Male

DRUGS (2)
  1. VIANI [Suspect]
     Dosage: 2UNIT TWICE PER DAY
     Route: 055
  2. SINGULAIR [Suspect]
     Dosage: 5MG PER DAY
     Route: 065

REACTIONS (1)
  - ASTHMA [None]
